FAERS Safety Report 4359643-6 (Version None)
Quarter: 2004Q2

REPORT INFORMATION
  Report Type: 
  Country: None (occurrence: None)
  Receive Date: 20040517
  Receipt Date: 20040517
  Transmission Date: 20050107
  Serious: Yes (Hospitalization)
  Sender: FDA-Public Use
  Company Number: None

PATIENT
  Age: 78 Year
  Sex: Male

DRUGS (2)
  1. PLAVIX [Suspect]
     Indication: CEREBROVASCULAR ACCIDENT
     Dosage: 75 MG DAILY ORAL
     Route: 048
     Dates: start: 20020101, end: 20040504
  2. PLAVIX [Suspect]
     Indication: HEMIPARESIS
     Dosage: 75 MG DAILY ORAL
     Route: 048
     Dates: start: 20020101, end: 20040504

REACTIONS (1)
  - GASTROINTESTINAL HAEMORRHAGE [None]
